FAERS Safety Report 26106471 (Version 1)
Quarter: 2025Q4

REPORT INFORMATION
  Report Type: Spontaneous
  Country: CN (occurrence: CN)
  Receive Date: 20251201
  Receipt Date: 20251201
  Transmission Date: 20260118
  Serious: Yes (Hospitalization, Other)
  Sender: BAXTER
  Company Number: None

PATIENT
  Age: 37 Year
  Sex: Female
  Weight: 44 kg

DRUGS (4)
  1. CYCLOPHOSPHAMIDE [Suspect]
     Active Substance: CYCLOPHOSPHAMIDE
     Indication: Invasive breast carcinoma
     Dosage: 0.853 G, QD [0.2 G/VIAL] (LYOPHILIZED POWDER FOR INJECTION)
     Route: 041
     Dates: start: 20251116, end: 20251121
  2. DOXORUBICIN HYDROCHLORIDE [Suspect]
     Active Substance: DOXORUBICIN HYDROCHLORIDE
     Indication: Invasive breast carcinoma
     Dosage: 43 MG, QD [5 ML: 10 MG/VIAL]
     Route: 041
     Dates: start: 20251116, end: 20251121
  3. SODIUM CHLORIDE [Suspect]
     Active Substance: SODIUM CHLORIDE
     Indication: Medication dilution
     Dosage: 100 ML, QD [100 ML/VIAL] [CENTRALIZED PROCUREMENT] (CYCLOPHOSPHAMIDE + 0.9% SODIUM CHLORIDE)
     Route: 041
     Dates: start: 20251116, end: 20251121
  4. DEXTROSE [Suspect]
     Active Substance: DEXTROSE MONOHYDRATE
     Indication: Medication dilution
     Dosage: 250 ML, QD (DOXORUBICIN HYDROCHLORIDE LIPOSOME + 5% GLUCOSE)
     Route: 041
     Dates: start: 20251116, end: 20251121

REACTIONS (11)
  - Haematemesis [Recovering/Resolving]
  - Dyspepsia [Recovering/Resolving]
  - Gastrooesophageal reflux disease [Recovering/Resolving]
  - Abdominal pain [Recovering/Resolving]
  - Vomiting [Recovering/Resolving]
  - Myelosuppression [Recovering/Resolving]
  - Adverse reaction [Recovering/Resolving]
  - Gastrointestinal disorder [Recovering/Resolving]
  - Hypophagia [Recovering/Resolving]
  - Urinary tract disorder [Recovering/Resolving]
  - Nausea [Recovering/Resolving]

NARRATIVE: CASE EVENT DATE: 20251119
